FAERS Safety Report 16945926 (Version 2)
Quarter: 2019Q4

REPORT INFORMATION
  Report Type: Spontaneous
  Country: US (occurrence: US)
  Receive Date: 20191022
  Receipt Date: 20191125
  Transmission Date: 20200122
  Serious: Yes (Other)
  Sender: FDA-Public Use
  Company Number: US-ALEXION-A201916055

PATIENT
  Age: 53 Year
  Sex: Female

DRUGS (6)
  1. SOLIRIS [Suspect]
     Active Substance: ECULIZUMAB
     Indication: ESCHERICHIA TEST POSITIVE
  2. SOLIRIS [Suspect]
     Active Substance: ECULIZUMAB
     Indication: OFF LABEL USE
  3. CIPROFLOXACIN. [Concomitant]
     Active Substance: CIPROFLOXACIN
     Indication: PRODUCT USED FOR UNKNOWN INDICATION
     Dosage: 400 MG, ON DAY OF ADMISSION
     Route: 065
  4. SOLIRIS [Suspect]
     Active Substance: ECULIZUMAB
     Indication: HAEMOLYTIC URAEMIC SYNDROME
     Dosage: 900 MG, QW
     Route: 042
  5. METRONIDAZOLE. [Concomitant]
     Active Substance: METRONIDAZOLE
     Indication: PRODUCT USED FOR UNKNOWN INDICATION
     Dosage: 500 MG, ON DAY OF ADMISSION
     Route: 065
  6. AZITHROMYCIN ANHYDROUS. [Concomitant]
     Active Substance: AZITHROMYCIN ANHYDROUS
     Indication: PROPHYLAXIS
     Dosage: 250 MG, UNK
     Route: 048

REACTIONS (12)
  - Cardiac arrest [Recovered/Resolved]
  - Off label use [Recovered/Resolved]
  - Neurological examination abnormal [Unknown]
  - Intention tremor [Unknown]
  - Mental fatigue [Recovering/Resolving]
  - Impulse-control disorder [Unknown]
  - Laboratory test abnormal [Unknown]
  - General physical health deterioration [Recovering/Resolving]
  - Extraocular muscle disorder [Unknown]
  - Seizure [Recovered/Resolved]
  - Memory impairment [Recovering/Resolving]
  - Disturbance in attention [Unknown]
